FAERS Safety Report 7835529-7 (Version None)
Quarter: 2011Q4

REPORT INFORMATION
  Report Type: 
  Country: None (occurrence: None)
  Receive Date: 20111024
  Receipt Date: 20111013
  Transmission Date: 20120403
  Serious: Yes (Other)
  Sender: FDA-Public Use
  Company Number: PHHY2011SE90883

PATIENT
  Age: 14 Year
  Sex: Female
  Weight: 53.6 kg

DRUGS (1)
  1. RIMACTAZID [Suspect]
     Indication: TUBERCULOSIS
     Dosage: 4 DF, QD
     Route: 048
     Dates: start: 20110701

REACTIONS (1)
  - SYNCOPE [None]
